FAERS Safety Report 16737490 (Version 1)
Quarter: 2019Q3

REPORT INFORMATION
  Report Type: Report from Study
  Country: None (occurrence: US)
  Receive Date: 20190823
  Receipt Date: 20190823
  Transmission Date: 20191005
  Serious: Yes (Hospitalization, Other)
  Sender: FDA-Public Use
  Company Number: US-BIOVITRUM-2019US2592

PATIENT
  Age: 40 Year
  Sex: Female

DRUGS (1)
  1. KINERET [Suspect]
     Active Substance: ANAKINRA
     Indication: STILL^S DISEASE
     Route: 058
     Dates: start: 20190516

REACTIONS (12)
  - Haemoglobin decreased [Not Recovered/Not Resolved]
  - Pain [Unknown]
  - Still^s disease [Unknown]
  - Haemophagocytic lymphohistiocytosis [Unknown]
  - Haematocrit decreased [Not Recovered/Not Resolved]
  - Condition aggravated [Unknown]
  - Pyrexia [Unknown]
  - Rash [Recovered/Resolved]
  - Platelet count decreased [Not Recovered/Not Resolved]
  - Headache [Unknown]
  - White blood cell count decreased [Not Recovered/Not Resolved]
  - Off label use [Not Recovered/Not Resolved]

NARRATIVE: CASE EVENT DATE: 201907
